FAERS Safety Report 5352259-4 (Version None)
Quarter: 2007Q2

REPORT INFORMATION
  Report Type: 
  Country: None (occurrence: None)
  Receive Date: 20070521
  Receipt Date: 20070329
  Transmission Date: 20071010
  Serious: No
  Sender: FDA-Public Use
  Company Number: WAES 0703USA05583

PATIENT
  Age: 77 Year
  Sex: Male

DRUGS (7)
  1. JANUVIA [Suspect]
     Indication: DIABETES MELLITUS
     Dosage: 100 MG/DAILY/PO
     Route: 048
     Dates: end: 20070329
  2. AMARYL [Concomitant]
  3. LASIX [Concomitant]
  4. TENORMIN [Concomitant]
  5. VASOTEC [Concomitant]
  6. ZYRTEC [Concomitant]
  7. HYDRALAZINE HCL [Concomitant]

REACTIONS (2)
  - INSOMNIA [None]
  - PAIN [None]
